FAERS Safety Report 9261958 (Version 1)
Quarter: 2013Q2

REPORT INFORMATION
  Report Type: Spontaneous
  Country: ES (occurrence: ES)
  Receive Date: 20130429
  Receipt Date: 20130429
  Transmission Date: 20140414
  Serious: Yes (Death, Hospitalization)
  Sender: FDA-Public Use
  Company Number: ES-BAYER-2013-052299

PATIENT
  Age: 40 Year
  Sex: Male

DRUGS (5)
  1. KOGENATE BAYER [Suspect]
     Indication: FACTOR VIII DEFICIENCY
     Route: 042
     Dates: start: 2012, end: 20120730
  2. INCIVO 375 MG COMPRIMIDOS RECUBIERTOS CON PELICULA, 168 COMPRIMIDO [Suspect]
     Indication: HEPATITIS C
     Dosage: 750 MG, TID
     Route: 048
     Dates: start: 20120525, end: 20120720
  3. RIBAVIRIN [Suspect]
     Indication: HEPATITIS C
     Route: 048
     Dates: start: 20120525, end: 20120730
  4. PEGINTERFERON ALFA-2B [Suspect]
     Indication: HEPATITIS C
     Route: 058
     Dates: start: 20120528, end: 20120730
  5. AMCHAFIBRIN [Suspect]
     Dosage: 500 MG, BID
     Route: 048
     Dates: start: 2012, end: 20120730

REACTIONS (1)
  - Portal vein thrombosis [Fatal]
